FAERS Safety Report 11623427 (Version 1)
Quarter: 2015Q4

REPORT INFORMATION
  Report Type: Spontaneous
  Country: US (occurrence: US)
  Receive Date: 20151013
  Receipt Date: 20151013
  Transmission Date: 20160304
  Serious: No
  Sender: FDA-Public Use
  Company Number: US-JNJFOC-20150513024

PATIENT
  Age: 4 Year
  Sex: Male
  Weight: 13.61 kg

DRUGS (2)
  1. SEIZURE MEDICATIONS [Concomitant]
     Indication: SEIZURE
     Route: 065
  2. CHILDRENS TYLENOL [Suspect]
     Active Substance: ACETAMINOPHEN
     Indication: PYREXIA
     Route: 048
     Dates: start: 20150518, end: 20150518

REACTIONS (1)
  - Incorrect dose administered [Unknown]
